FAERS Safety Report 6949625-X (Version None)
Quarter: 2010Q3

REPORT INFORMATION
  Report Type: 
  Country: None (occurrence: None)
  Receive Date: 20100828
  Receipt Date: 20091231
  Transmission Date: 20110219
  Serious: No
  Sender: FDA-Public Use
  Company Number: US-ABBOTT-10P-163-0617822-00

PATIENT
  Age: 62 Year
  Sex: Male
  Weight: 94.432 kg

DRUGS (6)
  1. NIASPAN [Suspect]
     Indication: HIGH DENSITY LIPOPROTEIN DECREASED
     Dosage: LOT # NOT AVAILABLE; TAKING WHITE PILL CURRENTLY.
     Route: 048
     Dates: start: 20060101, end: 20091001
  2. NIASPAN [Suspect]
     Route: 048
     Dates: start: 20091001
  3. BIG RED FISH OIL [Concomitant]
     Indication: HIGH DENSITY LIPOPROTEIN DECREASED
     Route: 048
     Dates: start: 20090901
  4. DIOVAN [Concomitant]
     Indication: HYPERTENSION
  5. TOPROL-XL [Concomitant]
     Indication: HYPERTENSION
  6. ASPIRIN [Concomitant]
     Indication: PRODUCT USED FOR UNKNOWN INDICATION
     Route: 048

REACTIONS (2)
  - FLUSHING [None]
  - MIDDLE INSOMNIA [None]
